FAERS Safety Report 4831200-4 (Version None)
Quarter: 2005Q4

REPORT INFORMATION
  Report Type: 
  Country: None (occurrence: None)
  Receive Date: 20051118
  Receipt Date: 20050926
  Transmission Date: 20060501
  Serious: Yes (Hospitalization)
  Sender: FDA-Public Use
  Company Number: 2005PK01810

PATIENT
  Age: 778 Month
  Sex: Female
  Weight: 60 kg

DRUGS (1)
  1. ARIMIDEX [Suspect]
     Indication: BREAST CANCER
     Route: 048
     Dates: start: 20010101, end: 20050601

REACTIONS (7)
  - DRY MOUTH [None]
  - DRY THROAT [None]
  - ENDOMETRIAL HYPERPLASIA [None]
  - UTERINE POLYP [None]
  - VAGINAL HAEMORRHAGE [None]
  - VAGINAL INFECTION [None]
  - VULVOVAGINAL DRYNESS [None]
